FAERS Safety Report 7874590-0 (Version None)
Quarter: 2011Q4

REPORT INFORMATION
  Report Type: 
  Country: None (occurrence: None)
  Receive Date: 20111014
  Receipt Date: 20101118
  Transmission Date: 20120403
  Serious: Yes (Hospitalization)
  Sender: FDA-Public Use
  Company Number: 1000017235

PATIENT
  Age: 64 Year
  Sex: Male

DRUGS (6)
  1. XANAX (ALPRAZOLAM) (0.25 MILLIGRAM, TABLETS) (ALPRAZOLAM) [Concomitant]
  2. METOPROLOL (METOPROLOL) (TABLETS) (METOPROLOL) [Concomitant]
  3. LEXAPRO [Suspect]
     Indication: DEPRESSION
     Dosage: 5 MG (5 MG, 1 IN 1 D), ORAL
     Route: 048
     Dates: start: 20101103, end: 20101106
  4. LEVOTHYROXINE SODIUM [Concomitant]
  5. OMEPRAZOLE [Concomitant]
  6. DECADRON (DEXAMETHASONE) (TABLETS) (DEXAMETHASONE) [Concomitant]

REACTIONS (6)
  - PANIC ATTACK [None]
  - BLOOD PRESSURE DECREASED [None]
  - SUICIDAL IDEATION [None]
  - SUPRAVENTRICULAR TACHYCARDIA [None]
  - TREMOR [None]
  - AGITATION [None]
